FAERS Safety Report 23307813 (Version 4)
Quarter: 2024Q3

REPORT INFORMATION
  Report Type: Report from Study
  Country: CA (occurrence: CA)
  Receive Date: 20231218
  Receipt Date: 20240709
  Transmission Date: 20241016
  Serious: Yes (Other)
  Sender: TAKEDA
  Company Number: CA-TAKEDA-2023TUS120136

PATIENT
  Age: 41 Year
  Sex: Female
  Weight: 165 kg

DRUGS (34)
  1. VEDOLIZUMAB [Suspect]
     Active Substance: VEDOLIZUMAB
     Indication: Colitis ulcerative
     Dosage: 300 MILLIGRAM
     Route: 042
     Dates: start: 20170615
  2. VEDOLIZUMAB [Suspect]
     Active Substance: VEDOLIZUMAB
     Dosage: 300 MILLIGRAM
     Route: 042
     Dates: start: 20200912
  3. VEDOLIZUMAB [Suspect]
     Active Substance: VEDOLIZUMAB
     Dosage: 300 MILLIGRAM, Q4WEEKS
     Route: 042
     Dates: start: 20230804
  4. VEDOLIZUMAB [Suspect]
     Active Substance: VEDOLIZUMAB
     Dosage: 300 MILLIGRAM, Q4WEEKS
     Route: 042
  5. VEDOLIZUMAB [Suspect]
     Active Substance: VEDOLIZUMAB
     Dosage: 300 MILLIGRAM, Q4WEEKS
     Route: 042
  6. TRAMADOL [Concomitant]
     Active Substance: TRAMADOL\TRAMADOL HYDROCHLORIDE
     Dosage: 200 MILLIGRAM, QD
     Dates: start: 201612
  7. TYLENOL EXTRA STRENGTH [Concomitant]
     Active Substance: ACETAMINOPHEN
     Indication: Abdominal discomfort
     Dosage: UNK
  8. ASACOL [Concomitant]
     Active Substance: MESALAMINE
     Dosage: 4.8 GRAM, QD
     Dates: start: 20050103
  9. ACETAMINOPHEN [Concomitant]
     Active Substance: ACETAMINOPHEN
     Indication: Arthritis
     Dosage: 13000 MILLIGRAM, QD
     Route: 048
  10. ACETAMINOPHEN\TRAMADOL [Concomitant]
     Active Substance: ACETAMINOPHEN\TRAMADOL
     Indication: Analgesic therapy
     Dosage: 37.5 MILLIGRAM, QD
     Route: 048
  11. CYMBALTA [Concomitant]
     Active Substance: DULOXETINE HYDROCHLORIDE
     Indication: Affective disorder
     Dosage: 30 MILLIGRAM, QD
     Route: 048
  12. CANNABIS SATIVA SUBSP. INDICA TOP [Concomitant]
     Active Substance: CANNABIS SATIVA SUBSP. INDICA TOP
     Indication: Analgesic therapy
     Dosage: 30 MILLIGRAM, QD
     Route: 048
  13. CANNABIS SATIVA SUBSP. INDICA TOP [Concomitant]
     Active Substance: CANNABIS SATIVA SUBSP. INDICA TOP
     Indication: Affective disorder
     Dosage: 60 MILLIGRAM, QD
     Route: 048
  14. CANNABIS SATIVA SUBSP. INDICA TOP [Concomitant]
     Active Substance: CANNABIS SATIVA SUBSP. INDICA TOP
     Indication: Sleep disorder
  15. FERAMAX [Concomitant]
     Active Substance: IRON\POLYSACCHARIDES
     Indication: Anaemia
     Dosage: 150 MILLIGRAM, QD
     Route: 048
  16. VITAMIN D3 [Concomitant]
     Active Substance: CHOLECALCIFEROL
     Indication: Immune system disorder
     Dosage: UNK UNK, QD
     Route: 048
  17. JAMIESON PROBIOTIC [Concomitant]
     Indication: Abdominal discomfort
     Dosage: UNK UNK, QD
     Route: 048
  18. CALCIUM [Concomitant]
     Active Substance: CALCIUM
     Indication: Bone pain
     Dosage: 1000 MILLIGRAM, QD
     Route: 048
  19. CALCIUM [Concomitant]
     Active Substance: CALCIUM
     Indication: Neuralgia
  20. CALCIUM [Concomitant]
     Active Substance: CALCIUM
     Indication: Immune system disorder
  21. MAGNESIUM [Concomitant]
     Active Substance: MAGNESIUM
     Indication: Bone pain
     Dosage: 500 MILLIGRAM, QD
     Route: 048
  22. MAGNESIUM [Concomitant]
     Active Substance: MAGNESIUM
     Indication: Neuralgia
  23. MAGNESIUM [Concomitant]
     Active Substance: MAGNESIUM
     Indication: Immune system disorder
  24. ZINC [Concomitant]
     Active Substance: ZINC
     Indication: Bone pain
     Dosage: 50 MILLIGRAM, QD
     Route: 048
  25. ZINC [Concomitant]
     Active Substance: ZINC
     Indication: Neuralgia
  26. ZINC [Concomitant]
     Active Substance: ZINC
     Indication: Immune system disorder
  27. JWH-018 [Concomitant]
     Active Substance: JWH-018
     Dosage: 120 MICROGRAM, QD
     Route: 048
  28. VITAMIN D3 [Concomitant]
     Active Substance: CHOLECALCIFEROL
     Indication: Immune system disorder
     Dosage: UNK UNK, QD
     Route: 048
  29. SEROQUEL [Concomitant]
     Active Substance: QUETIAPINE FUMARATE
     Indication: Sleep disorder
     Dosage: UNK UNK, QD
     Route: 048
  30. METROGEL [Concomitant]
     Active Substance: METRONIDAZOLE
     Indication: Skin disorder
     Dosage: 1 PERCENT
     Route: 061
  31. CLOTRIMAZOLE [Concomitant]
     Active Substance: CLOTRIMAZOLE
     Dosage: 1 PERCENT
     Route: 061
  32. TOLNAFTATE [Concomitant]
     Active Substance: TOLNAFTATE
     Indication: Tinea pedis
     Dosage: 1 PERCENT
     Route: 061
  33. CLADRIBINE [Concomitant]
     Active Substance: CLADRIBINE
     Dosage: UNK
  34. MAVENCLAD [Concomitant]
     Active Substance: CLADRIBINE
     Dosage: UNK

REACTIONS (4)
  - Relapsing-remitting multiple sclerosis [Not Recovered/Not Resolved]
  - Off label use [Unknown]
  - Lymphopenia [Unknown]
  - Respiratory tract infection [Not Recovered/Not Resolved]

NARRATIVE: CASE EVENT DATE: 20230804
